FAERS Safety Report 7084182 (Version 8)
Quarter: 2022Q3

REPORT INFORMATION
  Report Type: Spontaneous
  Country: US (occurrence: US)
  Receive Date: 20090818
  Receipt Date: 20220906
  Transmission Date: 20221026
  Serious: Yes (Death, Life-Threatening, Hospitalization, Other)
  Sender: FDA-Public Use
  Company Number: US-ALEXION-A200900635

PATIENT
  Sex: Female

DRUGS (5)
  1. SOLIRIS [Suspect]
     Active Substance: ECULIZUMAB
     Indication: Paroxysmal nocturnal haemoglobinuria
     Dosage: 600 MG, QW X4
     Route: 042
     Dates: start: 20080710, end: 20080801
  2. SOLIRIS [Suspect]
     Active Substance: ECULIZUMAB
     Dosage: 900 MG, SINGLE
     Route: 042
     Dates: start: 20090806, end: 20090806
  3. SOLIRIS [Suspect]
     Active Substance: ECULIZUMAB
     Dosage: 900 MG, SINGLE, SUPPLEMENTAL DOSE
     Route: 042
     Dates: start: 20090808, end: 20090808
  4. SOLIRIS [Suspect]
     Active Substance: ECULIZUMAB
     Dosage: 900 MG, Q2W
     Route: 042
     Dates: start: 20080807
  5. SOLIRIS [Suspect]
     Active Substance: ECULIZUMAB
     Dosage: 900 MG, Q9D
     Route: 042
     Dates: start: 200907

REACTIONS (8)
  - Klebsiella sepsis [Fatal]
  - Pneumonia [Fatal]
  - Infection [Fatal]
  - Cardiac arrest [Unknown]
  - Abdominal wall haematoma [Unknown]
  - Neutropenia [Unknown]
  - Septic shock [Unknown]
  - Arthralgia [Unknown]

NARRATIVE: CASE EVENT DATE: 20090101
